FAERS Safety Report 21656047 (Version 1)
Quarter: 2022Q4

REPORT INFORMATION
  Report Type: Spontaneous
  Country: US (occurrence: US)
  Receive Date: 20221129
  Receipt Date: 20221129
  Transmission Date: 20230113
  Serious: No
  Sender: FDA-Public Use
  Company Number: US-TEVA-2022-US-2824601

PATIENT
  Age: 66 Year
  Sex: Female
  Weight: 58.97 kg

DRUGS (2)
  1. ESTRADIOL [Suspect]
     Active Substance: ESTRADIOL
     Indication: Premature menopause
     Dosage: 1 MG
     Route: 065
  2. ESTRADIOL [Suspect]
     Active Substance: ESTRADIOL
     Dosage: 2 MILLIGRAM DAILY; DOSE UPPED IT TO 2MG
     Route: 048
     Dates: start: 202203

REACTIONS (2)
  - Hot flush [Not Recovered/Not Resolved]
  - Libido decreased [Unknown]

NARRATIVE: CASE EVENT DATE: 20221001
